FAERS Safety Report 6403929-8 (Version None)
Quarter: 2009Q4

REPORT INFORMATION
  Report Type: 
  Country: None (occurrence: None)
  Receive Date: 20091015
  Receipt Date: 20091015
  Transmission Date: 20100525
  Serious: No
  Sender: FDA-Public Use
  Company Number: None

PATIENT
  Sex: Female
  Weight: 97.7 kg

DRUGS (2)
  1. ZICAM (EMPTY CONTAINER/DID NOT KEEP PRODUCT) [Suspect]
     Indication: INFLUENZA LIKE ILLNESS
     Dosage: 2 SPRAYS 2X DAILY
     Dates: start: 20080201, end: 20080401
  2. ZICAM (EMPTY CONTAINER/DID NOT KEEP PRODUCT) [Suspect]
     Indication: NASOPHARYNGITIS
     Dosage: 2 SPRAYS 2X DAILY
     Dates: start: 20080201, end: 20080401

REACTIONS (3)
  - AGEUSIA [None]
  - ANOSMIA [None]
  - MALAISE [None]
